FAERS Safety Report 8784177 (Version 1)
Quarter: 2012Q4

REPORT INFORMATION
  Report Type: Report from Study
  Country: US (occurrence: US)
  Receive Date: 20120913
  Receipt Date: 20120913
  Transmission Date: 20130627
  Serious: No
  Sender: FDA-Public Use
  Company Number: US-VERTEX PHARMACEUTICAL INC.-AE-2012-009408

PATIENT
  Sex: Male
  Weight: 101.82 kg

DRUGS (3)
  1. INCIVEK [Suspect]
     Indication: HEPATITIS C
     Route: 048
  2. PEGASYS INJ PROCLICK [Concomitant]
     Indication: HEPATITIS C
  3. RIBAVIRIN [Concomitant]
     Indication: HEPATITIS C

REACTIONS (7)
  - Depression [Unknown]
  - Influenza like illness [Unknown]
  - Irritability [Unknown]
  - Feeling of body temperature change [Unknown]
  - Bone pain [Unknown]
  - Myalgia [Unknown]
  - Pain [Unknown]
